FAERS Safety Report 5244975-X (Version None)
Quarter: 2007Q1

REPORT INFORMATION
  Report Type: 
  Country: None (occurrence: None)
  Receive Date: 20070221
  Receipt Date: 20070221
  Transmission Date: 20070707
  Serious: Yes (Life-Threatening, Hospitalization)
  Sender: FDA-Public Use
  Company Number: None

PATIENT
  Age: 41 Year
  Sex: Female
  Weight: 92.9874 kg

DRUGS (4)
  1. DAPSONE [Suspect]
     Indication: BRONCHITIS
     Dosage: 1 PILL ONCE A DAY PO
     Route: 048
     Dates: start: 20070123, end: 20070205
  2. DAPSONE [Suspect]
     Indication: PNEUMONIA
     Dosage: 1 PILL ONCE A DAY PO
     Route: 048
     Dates: start: 20070123, end: 20070205
  3. DAPSONE [Suspect]
     Indication: PROPHYLAXIS
     Dosage: 1 PILL ONCE A DAY PO
     Route: 048
     Dates: start: 20070123, end: 20070205
  4. DAPSONE [Suspect]

REACTIONS (21)
  - ABDOMINAL PAIN UPPER [None]
  - ASTHENIA [None]
  - BLOOD POTASSIUM DECREASED [None]
  - DIARRHOEA [None]
  - DRUG HYPERSENSITIVITY [None]
  - DYSPHAGIA [None]
  - DYSSTASIA [None]
  - EAR PAIN [None]
  - GAIT DISTURBANCE [None]
  - GASTROOESOPHAGEAL REFLUX DISEASE [None]
  - PAIN OF SKIN [None]
  - PHARYNGOLARYNGEAL PAIN [None]
  - PYREXIA [None]
  - RASH ERYTHEMATOUS [None]
  - RASH GENERALISED [None]
  - RASH PRURITIC [None]
  - SENSATION OF FOREIGN BODY [None]
  - SKIN BURNING SENSATION [None]
  - SKIN EXFOLIATION [None]
  - THROAT IRRITATION [None]
  - VOMITING [None]
